FAERS Safety Report 9431468 (Version 1)
Quarter: 2013Q3

REPORT INFORMATION
  Report Type: Spontaneous
  Country: US (occurrence: US)
  Receive Date: 20130730
  Receipt Date: 20130730
  Transmission Date: 20140515
  Serious: Yes (Congenital Anomaly)
  Sender: FDA-Public Use
  Company Number: US-FRI-1000046970

PATIENT
  Age: 0 Day
  Sex: Female

DRUGS (2)
  1. CELEXA [Suspect]
     Route: 064
  2. LEXAPRO [Suspect]
     Route: 064

REACTIONS (2)
  - Fallot^s tetralogy [Unknown]
  - Atrial septal defect [Unknown]
